FAERS Safety Report 7992645-7 (Version None)
Quarter: 2011Q4

REPORT INFORMATION
  Report Type: 
  Country: None (occurrence: None)
  Receive Date: 20111219
  Receipt Date: 20110103
  Transmission Date: 20120403
  Serious: No
  Sender: FDA-Public Use
  Company Number: US-ASTRAZENECA-2011SE00356

PATIENT
  Age: 38 Year
  Sex: Male

DRUGS (2)
  1. NEXIUM [Concomitant]
     Route: 048
  2. CRESTOR [Suspect]
     Indication: HYPERCHOLESTEROLAEMIA
     Route: 048
     Dates: start: 20101001

REACTIONS (2)
  - SOMNOLENCE [None]
  - FATIGUE [None]
